FAERS Safety Report 5728042-4 (Version None)
Quarter: 2008Q2

REPORT INFORMATION
  Report Type: 
  Country: None (occurrence: None)
  Receive Date: 20080430
  Receipt Date: 20080418
  Transmission Date: 20081010
  Serious: Yes (Other)
  Sender: FDA-Public Use
  Company Number: RENA-1000082

PATIENT
  Age: 61 Year
  Sex: Female

DRUGS (2)
  1. RENAGEL [Suspect]
     Indication: HYPERPHOSPHATAEMIA
     Dosage: 1.6 G, TID, ORAL, 1.6G, TID, ORAL
     Route: 048
     Dates: start: 20071201, end: 20080301
  2. RENAGEL [Suspect]
     Indication: HYPERPHOSPHATAEMIA
     Dosage: 1.6 G, TID, ORAL, 1.6G, TID, ORAL
     Route: 048
     Dates: start: 20080412, end: 20080401

REACTIONS (3)
  - PRURITUS GENERALISED [None]
  - RASH [None]
  - SKIN CANCER [None]
